FAERS Safety Report 8227707-2 (Version None)
Quarter: 2012Q1

REPORT INFORMATION
  Report Type: 
  Country: None (occurrence: None)
  Receive Date: 20120322
  Receipt Date: 20120320
  Transmission Date: 20120608
  Serious: Yes (Hospitalization)
  Sender: FDA-Public Use
  Company Number: US-B.I. PHARMACEUTICALS,INC./RIDGEFIELD-2012-BP-05255BP

PATIENT
  Age: 75 Year
  Sex: Female

DRUGS (10)
  1. ALBUTEROL [Concomitant]
     Indication: CHRONIC OBSTRUCTIVE PULMONARY DISEASE
     Route: 055
  2. LEXAPRO [Concomitant]
     Indication: ANXIETY
     Route: 048
  3. INSULIN [Concomitant]
     Indication: DIABETES MELLITUS
  4. SPIRIVA [Suspect]
     Indication: CHRONIC OBSTRUCTIVE PULMONARY DISEASE
     Dosage: 18 MCG
     Route: 055
     Dates: start: 20120101, end: 20120101
  5. GLUCOTROL [Concomitant]
     Indication: DIABETES MELLITUS
     Route: 048
  6. AVAPRO [Concomitant]
     Indication: HYPERTENSION
     Route: 048
  7. LASIX [Concomitant]
     Indication: CARDIAC FAILURE CONGESTIVE
     Route: 048
  8. LOPRESSOR [Concomitant]
     Indication: HYPERTENSION
     Route: 048
  9. NITROGLYCERIN [Concomitant]
     Indication: CHEST PAIN
     Route: 060
  10. ZANTAC [Concomitant]
     Indication: DYSPEPSIA
     Route: 048

REACTIONS (1)
  - PNEUMONIA [None]
